FAERS Safety Report 16981078 (Version 1)
Quarter: 2019Q4

REPORT INFORMATION
  Report Type: Other
  Country: US (occurrence: US)
  Receive Date: 20191031
  Receipt Date: 20191031
  Transmission Date: 20200122
  Serious: Yes (Other)
  Sender: FDA-Public Use
  Company Number: US-VITRUVIAS THERAPEUTICS-2076304

PATIENT
  Age: 23 Year
  Sex: Female
  Weight: 65 kg

DRUGS (4)
  1. LIDOCAINE AND PRILOCAINE [Suspect]
     Active Substance: LIDOCAINE\PRILOCAINE
     Route: 061
  2. LIDOCAINE. [Suspect]
     Active Substance: LIDOCAINE
     Route: 061
  3. BUPROPION. [Concomitant]
     Active Substance: BUPROPION
  4. ADDERALL [Concomitant]
     Active Substance: AMPHETAMINE ASPARTATE\AMPHETAMINE SULFATE\DEXTROAMPHETAMINE SACCHARATE\DEXTROAMPHETAMINE SULFATE

REACTIONS (1)
  - Methaemoglobinaemia [Recovered/Resolved]
